FAERS Safety Report 7822957-9 (Version None)
Quarter: 2011Q4

REPORT INFORMATION
  Report Type: 
  Country: None (occurrence: None)
  Receive Date: 20111018
  Receipt Date: 20110114
  Transmission Date: 20120403
  Serious: No
  Sender: FDA-Public Use
  Company Number: US-ASTRAZENECA-2011SE03078

PATIENT
  Age: 61 Year
  Sex: Female

DRUGS (3)
  1. ACIPHEX [Concomitant]
  2. SYMBICORT [Suspect]
     Indication: CHRONIC OBSTRUCTIVE PULMONARY DISEASE
     Dosage: 80/4.5MCG 2 PUFFS
     Route: 055
  3. SPIRIVA [Concomitant]

REACTIONS (2)
  - HYPERSENSITIVITY [None]
  - OESOPHAGEAL DISORDER [None]
